FAERS Safety Report 7242971-4 (Version None)
Quarter: 2011Q1

REPORT INFORMATION
  Report Type: 
  Country: None (occurrence: None)
  Receive Date: 20110125
  Receipt Date: 20110125
  Transmission Date: 20110831
  Serious: Yes (Other)
  Sender: FDA-Public Use
  Company Number: US-ELI_LILLY_AND_COMPANY-US201008002423

PATIENT
  Age: 80 Year
  Sex: Female

DRUGS (1)
  1. FORTEO [Suspect]

REACTIONS (6)
  - FALL [None]
  - CONSTIPATION [None]
  - ANKLE FRACTURE [None]
  - CONTUSION [None]
  - JOINT DISLOCATION [None]
  - BLOOD IRON DECREASED [None]
